FAERS Safety Report 24877594 (Version 1)
Quarter: 2025Q1

REPORT INFORMATION
  Report Type: Spontaneous
  Country: FR (occurrence: FR)
  Receive Date: 20250123
  Receipt Date: 20250123
  Transmission Date: 20250409
  Serious: Yes (Death, Other)
  Sender: AUROBINDO
  Company Number: FR-AFSSAPS-BS2024000919

PATIENT
  Age: 58 Year
  Sex: Male
  Weight: 58 kg

DRUGS (2)
  1. MEROPENEM [Suspect]
     Active Substance: MEROPENEM
     Indication: Brain empyema
     Dosage: 2 GRAM, 3 TIMES A DAY
     Route: 042
     Dates: start: 20240908, end: 20241021
  2. SIVEXTRO [Suspect]
     Active Substance: TEDIZOLID PHOSPHATE
     Indication: Brain empyema
     Dosage: 200 MILLIGRAM, TWO TIMES A DAY
     Route: 042
     Dates: start: 20240908, end: 20241112

REACTIONS (1)
  - Metabolic encephalopathy [Fatal]

NARRATIVE: CASE EVENT DATE: 20241018
